FAERS Safety Report 7042528-4 (Version None)
Quarter: 2010Q4

REPORT INFORMATION
  Report Type: 
  Country: None (occurrence: None)
  Receive Date: 20101013
  Receipt Date: 20091202
  Transmission Date: 20110411
  Serious: Yes (Hospitalization)
  Sender: FDA-Public Use
  Company Number: US-ASTRAZENECA-2009SE29893

PATIENT
  Age: 27 Year
  Sex: Male

DRUGS (1)
  1. SYMBICORT [Suspect]
     Indication: ASTHMA
     Dosage: 640 MCG
     Route: 055
     Dates: start: 20080401

REACTIONS (2)
  - ASTHMA [None]
  - DRUG DOSE OMISSION [None]
